FAERS Safety Report 17663123 (Version 1)
Quarter: 2020Q2

REPORT INFORMATION
  Report Type: Spontaneous
  Country: CA (occurrence: CA)
  Receive Date: 20200414
  Receipt Date: 20200414
  Transmission Date: 20200713
  Serious: Yes (Other)
  Sender: FDA-Public Use
  Company Number: CA-ABBVIE-20K-028-3360039-00

PATIENT
  Age: 41 Year
  Sex: Female

DRUGS (1)
  1. HUMIRA [Suspect]
     Active Substance: ADALIMUMAB
     Indication: HIDRADENITIS
     Route: 058
     Dates: start: 201807

REACTIONS (4)
  - Cutaneous lupus erythematosus [Unknown]
  - Psoriasis [Unknown]
  - Alopecia [Unknown]
  - Skin lesion [Unknown]

NARRATIVE: CASE EVENT DATE: 201911
